FAERS Safety Report 5518512-6 (Version None)
Quarter: 2007Q4

REPORT INFORMATION
  Report Type: 
  Country: None (occurrence: None)
  Receive Date: 20071115
  Receipt Date: 20071114
  Transmission Date: 20080405
  Serious: Yes (Death, Other)
  Sender: FDA-Public Use
  Company Number: JP-BRISTOL-MYERS SQUIBB COMPANY-13947759

PATIENT
  Age: 64 Year
  Sex: Male

DRUGS (8)
  1. PARAPLATIN [Suspect]
     Indication: B-CELL LYMPHOMA
     Route: 041
     Dates: start: 20050201
  2. LASTET [Suspect]
     Indication: LYMPHOMA
     Route: 042
     Dates: start: 20050201
  3. ENDOXAN INJ [Suspect]
     Indication: LYMPHOMA
     Route: 042
  4. ONCOVIN [Suspect]
     Indication: LYMPHOMA
     Route: 042
  5. ADRIACIN [Suspect]
     Indication: LYMPHOMA
     Route: 042
  6. PREDNISONE TAB [Suspect]
     Indication: LYMPHOMA
     Route: 042
  7. IFOMIDE [Concomitant]
     Route: 042
     Dates: start: 20050201
  8. DEXAMETHASONE [Concomitant]
     Dates: start: 20050201

REACTIONS (3)
  - ACUTE LEUKAEMIA [None]
  - MALIGNANT NEOPLASM PROGRESSION [None]
  - MYELODYSPLASTIC SYNDROME [None]
